FAERS Safety Report 16371517 (Version 6)
Quarter: 2019Q4

REPORT INFORMATION
  Report Type: Spontaneous
  Country: US (occurrence: US)
  Receive Date: 20190530
  Receipt Date: 20191125
  Transmission Date: 20200122
  Serious: Yes (Other)
  Sender: FDA-Public Use
  Company Number: US-PFIZER INC-2019228368

PATIENT
  Age: 10 Year
  Sex: Female

DRUGS (1)
  1. GENOTROPIN [Suspect]
     Active Substance: SOMATROPIN
     Dosage: 1.6 MG, DAILY, 6 DAY
     Dates: start: 20190514

REACTIONS (5)
  - Diabetes mellitus [Unknown]
  - Injection site bruising [Unknown]
  - Glucose tolerance impaired [Unknown]
  - Injection site haemorrhage [Unknown]
  - Product dose omission [Unknown]
